FAERS Safety Report 14478291 (Version 3)
Quarter: 2018Q2

REPORT INFORMATION
  Report Type: Report from Study
  Country: CA (occurrence: CA)
  Receive Date: 20180202
  Receipt Date: 20180505
  Transmission Date: 20180711
  Serious: Yes (Hospitalization)
  Sender: FDA-Public Use
  Company Number: CA-ROCHE-2060692

PATIENT
  Age: 75 Year
  Sex: Female

DRUGS (17)
  1. ACTEMRA [Suspect]
     Active Substance: TOCILIZUMAB
     Indication: RHEUMATOID ARTHRITIS
     Route: 042
     Dates: start: 20171115
  2. METFORMIN [Concomitant]
     Active Substance: METFORMIN HYDROCHLORIDE
  3. BENZYDAMINE [Concomitant]
     Active Substance: BENZYDAMINE
  4. LORAZEPAM. [Concomitant]
     Active Substance: LORAZEPAM
  5. PANTOPRAZOLE [Concomitant]
     Active Substance: PANTOPRAZOLE
  6. METRONIDAZOLE. [Concomitant]
     Active Substance: METRONIDAZOLE
  7. SULFASALAZINE. [Concomitant]
     Active Substance: SULFASALAZINE
  8. CODEINE [Concomitant]
     Active Substance: CODEINE
  9. RAMIPRIL. [Concomitant]
     Active Substance: RAMIPRIL
  10. DOMPERIDONE [Concomitant]
     Active Substance: DOMPERIDONE
  11. PLAQUENIL [Concomitant]
     Active Substance: HYDROXYCHLOROQUINE SULFATE
  12. AMLODIPINE [Concomitant]
     Active Substance: AMLODIPINE BESYLATE
  13. ATORVASTATIN [Concomitant]
     Active Substance: ATORVASTATIN
  14. SALBUTAMOL [Concomitant]
     Active Substance: ALBUTEROL
  15. TYLENOL [Concomitant]
     Active Substance: ACETAMINOPHEN
  16. DOCUSATE SODIUM. [Concomitant]
     Active Substance: DOCUSATE SODIUM
  17. HYDROCHLOROTHIAZIDE. [Concomitant]
     Active Substance: HYDROCHLOROTHIAZIDE

REACTIONS (7)
  - Fall [Unknown]
  - Vomiting [Recovered/Resolved]
  - Electrolyte imbalance [Recovered/Resolved]
  - Joint injury [Unknown]
  - Diarrhoea [Recovered/Resolved]
  - Influenza [Recovering/Resolving]
  - Abdominal discomfort [Recovered/Resolved]

NARRATIVE: CASE EVENT DATE: 20180122
